FAERS Safety Report 8931367 (Version 2)
Quarter: 2012Q4

REPORT INFORMATION
  Report Type: 
  Country: JP (occurrence: JP)
  Receive Date: 20121128
  Receipt Date: 20121210
  Transmission Date: 20130627
  Serious: Yes (Other)
  Sender: FDA-Public Use
  Company Number: JP-PFIZER INC-2012296834

PATIENT
  Age: 71 Year
  Sex: Female

DRUGS (3)
  1. LIPITOR [Suspect]
     Dosage: UNK
     Route: 048
     Dates: start: 200710
  2. MOHRUS [Concomitant]
     Dosage: UNK
  3. AZUCURENIN S [Concomitant]
     Dosage: UNK

REACTIONS (1)
  - Bone marrow failure [Unknown]
